FAERS Safety Report 24811320 (Version 1)
Quarter: 2025Q1

REPORT INFORMATION
  Report Type: Spontaneous
  Country: IN (occurrence: IN)
  Receive Date: 20250106
  Receipt Date: 20250106
  Transmission Date: 20250408
  Serious: Yes (Hospitalization, Other)
  Sender: BEXIMCO PHARMACEUTICALS
  Company Number: IN-BEXIMCO-2024BEX00061

PATIENT
  Age: 39 Year
  Sex: Male

DRUGS (6)
  1. BACLOFEN [Suspect]
     Active Substance: BACLOFEN
     Indication: Alcoholism
     Dosage: 60 MG, 1X/DAY
     Route: 048
     Dates: start: 2020
  2. BACLOFEN [Suspect]
     Active Substance: BACLOFEN
  3. BACLOFEN [Suspect]
     Active Substance: BACLOFEN
     Dosage: 200 MG, 2X/DAY
  4. BACLOFEN [Suspect]
     Active Substance: BACLOFEN
     Dates: start: 20221017
  5. ALCOHOL [Suspect]
     Active Substance: ALCOHOL
     Dosage: 60 G, 1X/DAY OVER 8-10 HOURS
  6. ALCOHOL [Suspect]
     Active Substance: ALCOHOL

REACTIONS (2)
  - Cardiopulmonary failure [Recovering/Resolving]
  - Drug abuse [Unknown]

NARRATIVE: CASE EVENT DATE: 20221017
